FAERS Safety Report 11515310 (Version 1)
Quarter: 2015Q3

REPORT INFORMATION
  Report Type: Spontaneous
  Country: CH (occurrence: CH)
  Receive Date: 20150916
  Receipt Date: 20150916
  Transmission Date: 20151125
  Serious: Yes (Hospitalization, Other)
  Sender: FDA-Public Use
  Company Number: SE-ASTRAZENECA-2015SE89109

PATIENT
  Age: 538 Month
  Sex: Female

DRUGS (9)
  1. GOSERELIN ACETATE [Suspect]
     Active Substance: GOSERELIN ACETATE
     Route: 058
     Dates: start: 201107, end: 201210
  2. VINORELBINE [Concomitant]
     Active Substance: VINORELBINE\VINORELBINE TARTRATE
  3. PACLITAXEL. [Concomitant]
     Active Substance: PACLITAXEL
     Dates: start: 20150306, end: 20150522
  4. LEUPRORELINACETATE [Concomitant]
  5. TAMOXIFEN [Suspect]
     Active Substance: TAMOXIFEN
     Route: 048
     Dates: start: 200409, end: 200704
  6. CAPECITABINE. [Concomitant]
     Active Substance: CAPECITABINE
  7. FULVESTRANT [Suspect]
     Active Substance: FULVESTRANT
     Route: 030
     Dates: start: 201306, end: 201309
  8. CAELYX [Concomitant]
     Active Substance: DOXORUBICIN HYDROCHLORIDE
  9. TAMOXIFEN [Suspect]
     Active Substance: TAMOXIFEN
     Route: 048
     Dates: start: 1991

REACTIONS (10)
  - Metastases to the mediastinum [Unknown]
  - Metastases to ovary [Unknown]
  - Metastases to lung [Unknown]
  - Metastases to peritoneum [Unknown]
  - Metastases to adrenals [Unknown]
  - Metastases to lymph nodes [Unknown]
  - Metastases to pleura [Unknown]
  - Metastases to bone [Unknown]
  - Odynophagia [Unknown]
  - Metastases to liver [Unknown]

NARRATIVE: CASE EVENT DATE: 201306
